FAERS Safety Report 5330002-2 (Version None)
Quarter: 2007Q2

REPORT INFORMATION
  Report Type: 
  Country: None (occurrence: None)
  Receive Date: 20070521
  Receipt Date: 20070511
  Transmission Date: 20071010
  Serious: Yes (Hospitalization)
  Sender: FDA-Public Use
  Company Number: B0465248A

PATIENT
  Age: 86 Year
  Sex: Female

DRUGS (7)
  1. ARIXTRA [Suspect]
     Indication: PHLEBITIS
     Dosage: 7.5MG PER DAY
     Route: 058
     Dates: start: 20070301, end: 20070315
  2. KARDEGIC [Suspect]
     Dosage: 160MG PER DAY
     Route: 048
     Dates: end: 20070308
  3. EQUANIL [Concomitant]
     Dosage: 900MG PER DAY
     Route: 048
  4. LOXEN [Concomitant]
     Indication: ESSENTIAL HYPERTENSION
     Dosage: 50MG PER DAY
     Route: 048
  5. HALDOL [Concomitant]
     Dosage: 20UNIT PER DAY
     Route: 048
  6. TERCIAN [Concomitant]
     Dosage: 10UNIT PER DAY
     Route: 048
  7. ANAFRANIL [Concomitant]
     Dosage: 75MG PER DAY
     Route: 048

REACTIONS (9)
  - ABDOMINAL HAEMATOMA [None]
  - ACIDOSIS [None]
  - ANAEMIA [None]
  - DISTURBANCE IN ATTENTION [None]
  - HYPERKALAEMIA [None]
  - INFLAMMATION [None]
  - PALLOR [None]
  - RENAL FAILURE ACUTE [None]
  - SOMNOLENCE [None]
